FAERS Safety Report 10374209 (Version 2)
Quarter: 2017Q1

REPORT INFORMATION
  Report Type: Report from Study
  Country: US (occurrence: US)
  Receive Date: 20140811
  Receipt Date: 20170109
  Transmission Date: 20170428
  Serious: Yes (Other)
  Sender: FDA-Public Use
  Company Number: US-ROCHE-1446375

PATIENT

DRUGS (4)
  1. RITUXIMAB [Suspect]
     Active Substance: RITUXIMAB
     Indication: CHRONIC LYMPHOCYTIC LEUKAEMIA
     Dosage: ON DAY 1, 8,15, 22, 36, 43 AND 50 AND REPEATED AGAIN IF NECESSARY
     Route: 042
  2. PENTOSTATIN. [Suspect]
     Active Substance: PENTOSTATIN
     Indication: CHRONIC LYMPHOCYTIC LEUKAEMIA
     Dosage: ON DAY 8,15, 22, 36, 43 AND 50 AND REPEATED AGAIN IF NECESSARY
     Route: 042
  3. PENTOSTATIN. [Suspect]
     Active Substance: PENTOSTATIN
     Indication: NON-HODGKIN^S LYMPHOMA
  4. RITUXIMAB [Suspect]
     Active Substance: RITUXIMAB
     Indication: NON-HODGKIN^S LYMPHOMA

REACTIONS (11)
  - Febrile neutropenia [Unknown]
  - Leukopenia [Unknown]
  - Rash [Unknown]
  - Gastrointestinal disorder [Unknown]
  - Dyspnoea [Unknown]
  - Pneumonia [Unknown]
  - Lung disorder [Unknown]
  - Neutropenia [Unknown]
  - Thrombocytopenia [Unknown]
  - Infection [Unknown]
  - Pyrexia [Unknown]
